FAERS Safety Report 8174009-9 (Version None)
Quarter: 2012Q1

REPORT INFORMATION
  Report Type: 
  Country: None (occurrence: None)
  Receive Date: 20120229
  Receipt Date: 20120223
  Transmission Date: 20120608
  Serious: Yes (Hospitalization, Other)
  Sender: FDA-Public Use
  Company Number: AU-ROCHE-802698

PATIENT
  Age: 58 Year
  Sex: Male
  Weight: 134 kg

DRUGS (5)
  1. PERINDOPRIL ERBUMINE [Concomitant]
  2. NEXIUM [Concomitant]
  3. NAPROXEN [Concomitant]
     Dates: start: 20000101
  4. VEMURAFENIB [Suspect]
     Indication: METASTATIC MALIGNANT MELANOMA
     Dosage: DATE OF LAST DOSE PRIOR TO SAE WAS:15 SEP 2011
     Route: 048
     Dates: start: 20110804, end: 20110916
  5. VEMURAFENIB [Suspect]
     Dosage: DATE OF LAST DOSE PRIOR TO SAE WAS:15 SEP 2011
     Route: 048

REACTIONS (3)
  - HEPATITIS [None]
  - DIABETES MELLITUS [None]
  - HEADACHE [None]
